FAERS Safety Report 9826065 (Version 2)
Quarter: 2013Q4

REPORT INFORMATION
  Report Type: Spontaneous
  Country: US (occurrence: None)
  Receive Date: 20131223
  Receipt Date: 20131223
  Transmission Date: 20140711
  Serious: Yes (Other)
  Sender: FDA-Public Use
  Company Number: 220549LEO

PATIENT
  Age: 47 Year
  Sex: Female

DRUGS (6)
  1. PICATO (0.015%, GEL) [Suspect]
     Indication: ACTINIC KERATOSIS
     Route: 061
     Dates: start: 20130208, end: 20130210
  2. VIT D (ERGOCALCIFEROL) [Concomitant]
  3. CALCIUM [Concomitant]
  4. FOSAMAX (ALENDRONATE SODIUM) [Concomitant]
  5. GLUCOSAMINE (GLUCOSAMINE SULFATE SODIUM CHLORIDE) [Concomitant]
  6. FISH OIL [Concomitant]

REACTIONS (4)
  - Application site erythema [None]
  - Application site vesicles [None]
  - Application site pain [None]
  - Application site swelling [None]
